FAERS Safety Report 6961969 (Version 2)
Quarter: 2020Q3

REPORT INFORMATION
  Report Type: Report from Study
  Country: US (occurrence: US)
  Receive Date: 20090407
  Receipt Date: 20090427
  Transmission Date: 20201104
  Serious: Yes (Other)
  Sender: FDA-Public Use
  Company Number: US-JNJFOC-20090307650

PATIENT
  Age: 42 Year
  Sex: Male
  Weight: 99 kg

DRUGS (6)
  1. FLONASE [Concomitant]
     Active Substance: FLUTICASONE PROPIONATE
     Indication: SEASONAL ALLERGY
     Dosage: TI PUFFS? AS PER NECESSARY
     Route: 045
  2. CISAPRIDE [Suspect]
     Active Substance: CISAPRIDE
     Route: 065
  3. ALLERGY DESENSITIZING INJECTION [Concomitant]
     Indication: MULTIPLE ALLERGIES
     Route: 065
  4. CISAPRIDE [Suspect]
     Active Substance: CISAPRIDE
     Indication: GASTROOESOPHAGEAL REFLUX DISEASE
     Route: 065
  5. ALBUTEROL. [Concomitant]
     Active Substance: ALBUTEROL
     Indication: ASTHMA
     Dosage: TI PUFFS? AS PER NECESSARY
     Route: 055
  6. PRILOSEC [Concomitant]
     Active Substance: OMEPRAZOLE MAGNESIUM
     Indication: GASTROOESOPHAGEAL REFLUX DISEASE

REACTIONS (1)
  - Electrocardiogram QT prolonged [Recovered/Resolved]

NARRATIVE: CASE EVENT DATE: 20090327
